FAERS Safety Report 4501020-9 (Version None)
Quarter: 2004Q4

REPORT INFORMATION
  Report Type: 
  Country: None (occurrence: None)
  Receive Date: 20041115
  Receipt Date: 20041021
  Transmission Date: 20050328
  Serious: Yes (Life-Threatening, Hospitalization, Disabling)
  Sender: FDA-Public Use
  Company Number: US-MERCK-0410USA03366

PATIENT
  Age: 42 Year
  Sex: Male

DRUGS (11)
  1. VIOXX [Suspect]
     Indication: PAIN MANAGEMENT
     Route: 048
     Dates: end: 20041001
  2. TRICOR [Concomitant]
     Route: 065
  3. CRESTOR [Concomitant]
     Route: 065
  4. PLAVIX [Concomitant]
     Route: 065
  5. PRINIVIL [Concomitant]
     Route: 065
  6. NEXIUM [Concomitant]
     Route: 065
  7. NORVASC [Concomitant]
     Route: 065
  8. IMDUR [Concomitant]
     Route: 065
  9. METOPROLOL [Concomitant]
     Route: 065
  10. ASPIRIN [Concomitant]
     Route: 065
  11. NITROGLYCERIN [Concomitant]
     Route: 065

REACTIONS (4)
  - CARDIAC DISORDER [None]
  - CHEST PAIN [None]
  - DIZZINESS [None]
  - MYOCARDIAL INFARCTION [None]
